FAERS Safety Report 19367974 (Version 2)
Quarter: 2021Q2

REPORT INFORMATION
  Report Type: Report from Study
  Country: ES (occurrence: ES)
  Receive Date: 20210602
  Receipt Date: 20210617
  Transmission Date: 20210717
  Serious: Yes (Hospitalization)
  Sender: FDA-Public Use
  Company Number: ES-SEATTLE GENETICS-2021SGN02949

PATIENT
  Age: 48 Year
  Sex: Female
  Weight: 96.6 kg

DRUGS (7)
  1. ADO?TRASTUZUMAB EMTANSINE. [Suspect]
     Active Substance: ADO-TRASTUZUMAB EMTANSINE
     Indication: HER2 POSITIVE BREAST CANCER
     Dosage: 3 MG/KG, Q3WEEKS
     Route: 042
     Dates: start: 20210406, end: 20210520
  2. ZOLPIDEM [Concomitant]
     Active Substance: ZOLPIDEM TARTRATE
     Indication: ANXIETY
     Dosage: 10 MG
     Dates: start: 202103
  3. PARACETAMOL [Concomitant]
     Active Substance: ACETAMINOPHEN
     Indication: PYREXIA
     Dosage: UNK
     Dates: start: 20210522
  4. ENANTYUM [Concomitant]
     Active Substance: DEXKETOPROFEN TROMETAMOL
     Indication: BONE PAIN
     Dosage: UNK
     Dates: start: 20210522
  5. AMERIDE M [Concomitant]
     Indication: OEDEMA PERIPHERAL
     Dosage: 5 MG/50 MG
     Dates: start: 20210520
  6. ONDANSETRON [Concomitant]
     Active Substance: ONDANSETRON
     Indication: NAUSEA
     Dosage: UNK
     Dates: start: 20210501, end: 20210516
  7. TUCATINIB [Suspect]
     Active Substance: TUCATINIB
     Indication: HER2 POSITIVE BREAST CANCER
     Dosage: 200 MG, BID
     Route: 048
     Dates: start: 20210406, end: 20210526

REACTIONS (1)
  - General physical health deterioration [Recovered/Resolved]

NARRATIVE: CASE EVENT DATE: 20210526
